FAERS Safety Report 8225946-8 (Version None)
Quarter: 2012Q1

REPORT INFORMATION
  Report Type: 
  Country: None (occurrence: None)
  Receive Date: 20120321
  Receipt Date: 20120314
  Transmission Date: 20120608
  Serious: Yes (Other)
  Sender: FDA-Public Use
  Company Number: JP-PFIZER INC-2012068780

PATIENT
  Age: 78 Year
  Sex: Female
  Weight: 40.9 kg

DRUGS (18)
  1. AVELOX [Concomitant]
     Indication: MYCOBACTERIUM AVIUM COMPLEX INFECTION
     Dosage: 400 MG, 1X/DAY
     Route: 048
  2. MEDICON [Concomitant]
     Indication: MYCOBACTERIUM AVIUM COMPLEX INFECTION
     Dosage: 15 MG, 3X/DAY
     Route: 048
  3. CLARITHROMYCIN [Concomitant]
     Indication: MYCOBACTERIUM AVIUM COMPLEX INFECTION
     Dosage: 400 MG, 2X/DAY
     Route: 048
     Dates: end: 20090918
  4. LOXONIN [Concomitant]
     Indication: PAIN
     Dosage: 60 MG, 3X/DAY
     Route: 048
  5. MUCOSTA [Concomitant]
     Indication: GASTRITIS PROPHYLAXIS
     Dosage: 100 MG, 3X/DAY
     Route: 048
  6. NOVORAPID [Concomitant]
     Dosage: 2-5 IU, 2X/DAY
     Route: 058
  7. SELBEX [Concomitant]
     Indication: GASTRITIS PROPHYLAXIS
     Dosage: 50 MG, 3X/DAY
     Route: 048
  8. MUCODYNE [Concomitant]
     Indication: MYCOBACTERIUM AVIUM COMPLEX INFECTION
     Dosage: 500 MG, 3X/DAY
     Route: 048
  9. RIZE [Concomitant]
     Dosage: 5 MG, 2X/DAY
     Route: 048
  10. ZOLPIDEM [Concomitant]
     Dosage: 10 MG, 1X/DAY
     Route: 048
  11. PANVITAN [Concomitant]
     Dosage: 0.5 G, 3X/DAY
     Route: 048
  12. RIFABUTIN [Suspect]
     Indication: MYCOBACTERIUM AVIUM COMPLEX INFECTION
     Dosage: 150 MG, 1X/DAY
     Route: 048
     Dates: start: 20090904, end: 20100305
  13. DEPAS [Concomitant]
     Dosage: 1 MG, 1X/DAY
     Route: 048
  14. LANSOPRAZOLE [Concomitant]
     Dosage: 15 MG, 1X/DAY
     Route: 048
  15. CLARITHROMYCIN [Concomitant]
     Dosage: 200 MG, 2X/DAY
     Route: 048
     Dates: start: 20090919
  16. OLMESARTAN MEDOXOMIL [Concomitant]
     Dosage: 20 MG, 1X/DAY
     Route: 048
  17. NORVASC [Concomitant]
     Dosage: 2.5 MG, 1X/DAY
     Route: 048
  18. ETODOLAC [Concomitant]
     Indication: PAIN
     Dosage: 200 MG, 2X/DAY
     Route: 048

REACTIONS (2)
  - HYPOKALAEMIA [None]
  - HYPONATRAEMIA [None]
